FAERS Safety Report 18358342 (Version 1)
Quarter: 2020Q4

REPORT INFORMATION
  Report Type: Spontaneous
  Country: US (occurrence: US)
  Receive Date: 20201008
  Receipt Date: 20201008
  Transmission Date: 20210114
  Serious: No
  Sender: FDA-Public Use
  Company Number: US-TERSERA THERAPEUTICS LLC-2020TRS002294

PATIENT

DRUGS (2)
  1. VARUBI [Suspect]
     Active Substance: ROLAPITANT
     Indication: PLASMA CELL MYELOMA
     Dosage: 90 MG, 2 TABLETS EVERY 2 WEEKS
     Route: 048
     Dates: start: 20191222
  2. XPOVIO [Suspect]
     Active Substance: SELINEXOR
     Indication: PRODUCT USED FOR UNKNOWN INDICATION
     Dosage: 20 MG 4 TABLETS TWICE WEEKLY
     Route: 065
     Dates: start: 20191222

REACTIONS (1)
  - Decreased activity [Recovering/Resolving]

NARRATIVE: CASE EVENT DATE: 202007
